FAERS Safety Report 9028660 (Version 1)
Quarter: 2013Q1

REPORT INFORMATION
  Report Type: Spontaneous
  Country: NL (occurrence: NL)
  Receive Date: 20130124
  Receipt Date: 20130124
  Transmission Date: 20140127
  Serious: Yes (Death)
  Sender: FDA-Public Use
  Company Number: PHHY2013NL006332

PATIENT
  Sex: Male

DRUGS (2)
  1. SANDOSTATIN LAR [Suspect]
     Indication: PANCREATIC NEUROENDOCRINE TUMOUR
     Dosage: 80 MG, ONCE EVERY 3 WEEKS
     Dates: start: 20080604
  2. SANDOSTATIN LAR [Suspect]
     Dosage: 80 MG, ONCE EVERY 3 WEEKS
     Dates: start: 20130114

REACTIONS (1)
  - General physical health deterioration [Fatal]
